FAERS Safety Report 9624729 (Version 1)
Quarter: 2013Q4

REPORT INFORMATION
  Report Type: Report from Study
  Country: RU (occurrence: RU)
  Receive Date: 20131015
  Receipt Date: 20131015
  Transmission Date: 20140711
  Serious: Yes (Hospitalization, Other)
  Sender: FDA-Public Use
  Company Number: RU-GILEAD-2013-0085007

PATIENT
  Sex: Male

DRUGS (6)
  1. EMTRICITABINE/TENOFOVIR DISOPROXIL FUMARATE [Suspect]
     Indication: HIV INFECTION
     Dosage: UNK
     Route: 064
  2. EDURANT [Suspect]
     Indication: HIV INFECTION
     Dosage: UNK
     Route: 064
  3. EPZICOM [Suspect]
     Indication: HIV INFECTION
     Route: 064
  4. KALETRA [Suspect]
     Indication: HIV INFECTION
     Route: 064
  5. ZIAGEN [Suspect]
     Indication: HIV INFECTION
     Route: 064
  6. EPIVIR [Suspect]
     Indication: HIV INFECTION
     Route: 064

REACTIONS (1)
  - Neonatal asphyxia [Unknown]
